FAERS Safety Report 17398210 (Version 1)
Quarter: 2020Q1

REPORT INFORMATION
  Report Type: Spontaneous
  Country: DZ (occurrence: DZ)
  Receive Date: 20200210
  Receipt Date: 20200210
  Transmission Date: 20200409
  Serious: Yes (Other)
  Sender: FDA-Public Use
  Company Number: DZ-MYLANLABS-2020M1015183

PATIENT
  Age: 53 Year
  Sex: Female

DRUGS (6)
  1. HERTRAZ 440 [Suspect]
     Active Substance: TRASTUZUMAB
     Indication: BREAST CANCER
     Dosage: 720 MILLIGRAM (LOADING DOSE 720MG) MAINTENANCE DOSE 540 MG)
     Route: 042
     Dates: start: 20191210, end: 20191210
  2. ZOLEDRONIC ACID [Interacting]
     Active Substance: ZOLEDRONIC ACID
     Indication: FRACTURE
  3. HERTRAZ 440 [Interacting]
     Active Substance: TRASTUZUMAB
     Indication: METASTATIC GASTRIC CANCER
  4. ZOLEDRONIC ACID [Interacting]
     Active Substance: ZOLEDRONIC ACID
     Indication: METASTASES TO BONE
     Dosage: UNK
     Route: 042
     Dates: start: 20191210, end: 20191210
  5. ZOLEDRONIC ACID [Interacting]
     Active Substance: ZOLEDRONIC ACID
     Indication: BLOOD CALCIUM INCREASED
  6. ZOLEDRONIC ACID [Interacting]
     Active Substance: ZOLEDRONIC ACID
     Indication: OSTEOPOROSIS

REACTIONS (3)
  - Tremor [Recovered/Resolved]
  - Drug interaction [Unknown]
  - Chills [Recovered/Resolved]

NARRATIVE: CASE EVENT DATE: 20191210
